FAERS Safety Report 8259280-7 (Version None)
Quarter: 2012Q2

REPORT INFORMATION
  Report Type: 
  Country: None (occurrence: None)
  Receive Date: 20120404
  Receipt Date: 20120301
  Transmission Date: 20120825
  Serious: Yes (Other)
  Sender: FDA-Public Use
  Company Number: US-AMGEN-USASP2012014146

PATIENT
  Sex: Male
  Weight: 4.535 kg

DRUGS (4)
  1. VIT D3 [Concomitant]
     Dosage: 2000 UNIT, QD
     Route: 064
  2. ENBREL [Suspect]
     Dosage: 50 MG, QWK
     Route: 064
  3. PRENATAL VITAMINS                  /01549301/ [Concomitant]
     Dosage: UNK UNK, QD
     Route: 064
  4. REMICADE [Concomitant]
     Dosage: UNK
     Route: 063
     Dates: start: 20111101, end: 20120105

REACTIONS (3)
  - LARGE FOR DATES BABY [None]
  - MATERNAL DRUGS AFFECTING FOETUS [None]
  - CAESAREAN SECTION [None]
